FAERS Safety Report 13893338 (Version 1)
Quarter: 2017Q3

REPORT INFORMATION
  Report Type: Spontaneous
  Country: US (occurrence: US)
  Receive Date: 20170822
  Receipt Date: 20170822
  Transmission Date: 20171127
  Serious: Yes (Other)
  Sender: FDA-Public Use
  Company Number: US-ROCHE-1251819

PATIENT
  Sex: Female

DRUGS (1)
  1. HERCEPTIN [Suspect]
     Active Substance: TRASTUZUMAB
     Indication: BREAST CANCER METASTATIC
     Dosage: CYCLE 9 OF HERCEPTIN
     Route: 042

REACTIONS (2)
  - Renal impairment [Not Recovered/Not Resolved]
  - Arteriovenous fistula operation [Not Recovered/Not Resolved]
